FAERS Safety Report 5972885-9 (Version None)
Quarter: 2008Q4

REPORT INFORMATION
  Report Type: 
  Country: None (occurrence: None)
  Receive Date: 20081201
  Receipt Date: 20081120
  Transmission Date: 20090506
  Serious: Yes (Hospitalization)
  Sender: FDA-Public Use
  Company Number: DE-GILEAD-2008-0019205

PATIENT
  Sex: Female

DRUGS (1)
  1. AMBRISENTAN [Suspect]
     Route: 048
     Dates: start: 20081001

REACTIONS (2)
  - ELECTROCARDIOGRAM ABNORMAL [None]
  - OEDEMA [None]
